FAERS Safety Report 21518767 (Version 2)
Quarter: 2022Q4

REPORT INFORMATION
  Report Type: Report from Study
  Country: US (occurrence: US)
  Receive Date: 20221028
  Receipt Date: 20221031
  Transmission Date: 20230113
  Serious: No
  Sender: FDA-Public Use
  Company Number: US-ABBVIE-4172638

PATIENT
  Sex: Female

DRUGS (4)
  1. VENCLEXTA [Suspect]
     Active Substance: VENETOCLAX
     Indication: Neoplasm
     Dosage: TAKE ONE TABLET BY MOUTH ON DAY ONE
     Route: 048
  2. VENCLEXTA [Suspect]
     Active Substance: VENETOCLAX
     Indication: Neoplasm
     Dosage: TWO TABLETS ON DAY TWO
     Route: 048
  3. VENCLEXTA [Suspect]
     Active Substance: VENETOCLAX
     Indication: Neoplasm
     Dosage: FOUR TABLETS BY MOUTH DAILY THEREAFTER
     Route: 048
  4. AZACITIDINE [Concomitant]
     Active Substance: AZACITIDINE
     Indication: Product used for unknown indication

REACTIONS (3)
  - Muscular weakness [Unknown]
  - Off label use [Unknown]
  - Therapeutic product effect incomplete [Unknown]
